FAERS Safety Report 7570769-6 (Version None)
Quarter: 2011Q2

REPORT INFORMATION
  Report Type: 
  Country: None (occurrence: None)
  Receive Date: 20110624
  Receipt Date: 20110616
  Transmission Date: 20111010
  Serious: Yes (Other)
  Sender: FDA-Public Use
  Company Number: FR-ELI_LILLY_AND_COMPANY-FR201106004572

PATIENT
  Sex: Female

DRUGS (3)
  1. AVASTIN [Concomitant]
     Indication: BRONCHIAL CARCINOMA
     Dosage: 25 MG/ML, UNKNOWN
     Route: 042
     Dates: start: 20100812, end: 20110104
  2. CARBOPLATIN [Concomitant]
     Indication: BRONCHIAL CARCINOMA
     Dosage: 340 MG, UNKNOWN
     Route: 042
     Dates: start: 20110104, end: 20110104
  3. ALIMTA [Suspect]
     Indication: BRONCHIAL CARCINOMA
     Dosage: 740 MG, EVERY 3 WEEKS
     Route: 042
     Dates: start: 20101130, end: 20110104

REACTIONS (5)
  - RENAL ISCHAEMIA [None]
  - ASCITES [None]
  - ANAEMIA [None]
  - DIARRHOEA [None]
  - DEHYDRATION [None]
